FAERS Safety Report 7825258 (Version 2)
Quarter: 2012Q4

REPORT INFORMATION
  Report Type: 
  Country: US (occurrence: US)
  Receive Date: 20110224
  Receipt Date: 20121105
  Transmission Date: 20130627
  Serious: Yes (Other)
  Sender: FDA-Public Use
  Company Number: US-ROCHE-739180

PATIENT
  Age: 14 Year
  Sex: Male
  Weight: 88.5 kg

DRUGS (2)
  1. ACCUTANE [Suspect]
     Indication: ACNE
     Route: 065
     Dates: start: 19931201, end: 19931223
  2. ACCUTANE [Suspect]
     Route: 065

REACTIONS (8)
  - Colitis ulcerative [Unknown]
  - Gastrointestinal injury [Unknown]
  - Inflammatory bowel disease [Unknown]
  - Anxiety [Unknown]
  - Dry skin [Unknown]
  - Polyp [Unknown]
  - Haemorrhoids [Unknown]
  - Pneumonia [Unknown]
